FAERS Safety Report 8099954-4 (Version None)
Quarter: 2012Q1

REPORT INFORMATION
  Report Type: 
  Country: None (occurrence: None)
  Receive Date: 20120129
  Receipt Date: 20111126
  Transmission Date: 20120608
  Serious: No
  Sender: FDA-Public Use
  Company Number: US-ABBOTT-11P-163-0878204-00

PATIENT
  Age: 56 Year
  Sex: Female

DRUGS (11)
  1. HUMIRA [Suspect]
     Indication: PSORIATIC ARTHROPATHY
     Dates: start: 20100501
  2. ZYRTEC [Concomitant]
     Indication: PROPHYLAXIS
     Dosage: ON DAYS WHEN TAKING HUMIRA PEN
  3. IBUPROFEN [Concomitant]
     Indication: PRODUCT USED FOR UNKNOWN INDICATION
     Dosage: 1200-1400MG DAILY
  4. VECTICAL [Concomitant]
     Indication: PRODUCT USED FOR UNKNOWN INDICATION
  5. PEPCID [Concomitant]
     Indication: PRODUCT USED FOR UNKNOWN INDICATION
  6. ACETAMINOPHEN [Concomitant]
     Indication: PRODUCT USED FOR UNKNOWN INDICATION
  7. CLOBETASOL [Concomitant]
     Indication: PRODUCT USED FOR UNKNOWN INDICATION
     Dosage: DAILY
  8. METHOTREXATE [Concomitant]
     Indication: PRODUCT USED FOR UNKNOWN INDICATION
  9. VALTREX [Concomitant]
     Indication: PRODUCT USED FOR UNKNOWN INDICATION
  10. IBUPROFEN [Concomitant]
     Dosage: DAILY
  11. FOLIC [Concomitant]
     Indication: PRODUCT USED FOR UNKNOWN INDICATION

REACTIONS (3)
  - PAIN IN EXTREMITY [None]
  - DRUG DOSE OMISSION [None]
  - INCORRECT STORAGE OF DRUG [None]
